FAERS Safety Report 17468658 (Version 1)
Quarter: 2020Q1

REPORT INFORMATION
  Report Type: Spontaneous
  Country: NL (occurrence: NL)
  Receive Date: 20200227
  Receipt Date: 20200227
  Transmission Date: 20200409
  Serious: Yes (Hospitalization)
  Sender: FDA-Public Use
  Company Number: NL-SA-2020SA047233

PATIENT
  Age: 51 Year
  Sex: Female
  Weight: 70.7 kg

DRUGS (1)
  1. CLOPIDOGREL BISULFATE. [Suspect]
     Active Substance: CLOPIDOGREL BISULFATE
     Indication: CEREBRAL INFARCTION
     Dosage: 75 MG, QD, TABLET, 75 MG (MILLIGRAM), 1 TIME A DAY, 1
     Route: 065
     Dates: start: 20200131, end: 20200203

REACTIONS (3)
  - Nervousness [Recovered/Resolved]
  - Palpitations [Recovered/Resolved]
  - Dyspnoea [Recovered/Resolved]

NARRATIVE: CASE EVENT DATE: 20200131
